FAERS Safety Report 17068906 (Version 1)
Quarter: 2019Q4

REPORT INFORMATION
  Report Type: Spontaneous
  Country: US (occurrence: US)
  Receive Date: 20191124
  Receipt Date: 20191124
  Transmission Date: 20200122
  Serious: No
  Sender: FDA-Public Use
  Company Number: US-TEVA-2019-US-1139750

PATIENT
  Sex: Male

DRUGS (1)
  1. TESTOSTERONE GEL TEVA [Suspect]
     Active Substance: TESTOSTERONE
     Route: 061

REACTIONS (2)
  - Product substitution issue [Unknown]
  - Rash [Unknown]
